FAERS Safety Report 8163202-7 (Version None)
Quarter: 2012Q1

REPORT INFORMATION
  Report Type: 
  Country: None (occurrence: None)
  Receive Date: 20120224
  Receipt Date: 20111007
  Transmission Date: 20120608
  Serious: No
  Sender: FDA-Public Use
  Company Number: US-PFIZER INC-K201101191

PATIENT
  Sex: Female
  Weight: 73.469 kg

DRUGS (7)
  1. COZAAR [Concomitant]
     Indication: HYPERTENSION
     Dosage: 50 MG, 1X/DAY
     Route: 048
  2. FLECTOR [Suspect]
     Indication: BACK PAIN
  3. LEXAPRO [Concomitant]
     Indication: SEDATIVE THERAPY
     Dosage: 20 MG, 1X/DAY
     Route: 048
  4. TOPROL-XL [Concomitant]
     Dosage: 25 MG, 1X/DAY
     Route: 048
  5. FLECTOR [Suspect]
     Indication: MUSCULOSKELETAL PAIN
     Dosage: UNK PATCH, BID
     Route: 061
     Dates: start: 20111004, end: 20111006
  6. PRADAXAR [Concomitant]
     Indication: ATRIAL FIBRILLATION
     Dosage: 150 MG, 1X/DAY
     Route: 048
  7. TRAMADOL [Concomitant]
     Indication: PAIN
     Dosage: 30 MG, EVERY 3 DAYS
     Route: 048

REACTIONS (1)
  - DRUG INEFFECTIVE [None]
